FAERS Safety Report 5501650-1 (Version None)
Quarter: 2007Q4

REPORT INFORMATION
  Report Type: 
  Country: None (occurrence: None)
  Receive Date: 20071026
  Receipt Date: 20071015
  Transmission Date: 20080405
  Serious: Yes (Hospitalization)
  Sender: FDA-Public Use
  Company Number: LTI2007A00297

PATIENT
  Age: 70 Year
  Sex: Female

DRUGS (6)
  1. ACTOS [Suspect]
     Indication: TYPE 2 DIABETES MELLITUS
     Dosage: 45 MG (45 MG, 1 IN 1 D) ORAL
     Route: 048
     Dates: start: 20050101, end: 20070504
  2. HYTACAND (HYDROCHLOROTHIAZIDE, CANDESARTAN CILEXETIL) [Concomitant]
  3. ZOCOR [Concomitant]
  4. AMLODIPINE BESYLATE [Concomitant]
  5. DIASTABOL (MIGLITOL) [Concomitant]
  6. DIAMICRON (GLICLAZIDE) [Concomitant]

REACTIONS (1)
  - ACUTE PULMONARY OEDEMA [None]
